FAERS Safety Report 5148955-4 (Version None)
Quarter: 2006Q4

REPORT INFORMATION
  Report Type: 
  Country: None (occurrence: None)
  Receive Date: 20061113
  Receipt Date: 20060406
  Transmission Date: 20070319
  Serious: Yes (Other)
  Sender: FDA-Public Use
  Company Number: US-BRISTOL-MYERS SQUIBB COMPANY-13339940

PATIENT
  Age: 75 Year
  Sex: Female
  Weight: 68 kg

DRUGS (5)
  1. ESTRACE [Suspect]
     Indication: OSTEOPOROSIS
     Dates: start: 19940101, end: 19980101
  2. PROVERA [Suspect]
     Indication: OSTEOPOROSIS
     Dates: start: 19910101, end: 19940101
  3. PREMARIN [Suspect]
     Indication: OSTEOPOROSIS
     Dates: start: 19910101, end: 19940101
  4. AYGESTIN [Suspect]
     Indication: OSTEOPOROSIS
     Dates: start: 19960101, end: 20000101
  5. EVISTA [Suspect]
     Indication: OSTEOPOROSIS
     Dates: start: 19980101, end: 20000101

REACTIONS (1)
  - BREAST CANCER [None]
